FAERS Safety Report 25014241 (Version 1)
Quarter: 2025Q1

REPORT INFORMATION
  Report Type: Spontaneous
  Country: PK (occurrence: PK)
  Receive Date: 20250226
  Receipt Date: 20250226
  Transmission Date: 20250408
  Serious: Yes (Death, Other)
  Sender: AMGEN
  Company Number: PK-AMGEN-PAKSP2025035414

PATIENT

DRUGS (6)
  1. FILGRASTIM [Suspect]
     Active Substance: FILGRASTIM
     Indication: Prophylaxis
     Route: 058
  2. CYCLOPHOSPHAMIDE [Concomitant]
     Active Substance: CYCLOPHOSPHAMIDE
     Dosage: 250 MILLIGRAM/SQ. METER, QD,  DAILY ON DAYS 1 - 5
     Route: 040
  3. VINCRISTINE [Concomitant]
     Active Substance: VINCRISTINE
     Route: 040
  4. PREDNISOLONE [Concomitant]
     Active Substance: PREDNISOLONE
     Dosage: 60 MILLIGRAM/SQ. METER, QD, ORALLY OR IV, DAILY ON DAYS 1-5
  5. DOXORUBICIN [Concomitant]
     Active Substance: DOXORUBICIN
     Route: 040
  6. METHOTREXATE [Concomitant]
     Active Substance: METHOTREXATE

REACTIONS (1)
  - Febrile neutropenia [Fatal]
